FAERS Safety Report 24889490 (Version 1)
Quarter: 2025Q1

REPORT INFORMATION
  Report Type: Spontaneous
  Country: US (occurrence: None)
  Receive Date: 20250124
  Receipt Date: 20250124
  Transmission Date: 20250409
  Serious: Yes (Disabling)
  Sender: FDA-CTU
  Company Number: None

PATIENT
  Age: 59 Year
  Sex: Female
  Weight: 89.1 kg

DRUGS (11)
  1. CLOBETASOL PROPIONATE [Suspect]
     Active Substance: CLOBETASOL PROPIONATE
     Indication: Alopecia
     Route: 050
     Dates: start: 20241231, end: 20250108
  2. NURTEC ODT [Concomitant]
     Active Substance: RIMEGEPANT SULFATE
  3. COD LIVER OIL [Concomitant]
     Active Substance: COD LIVER OIL
  4. MAGNESIUM GLYCINATE [Concomitant]
     Active Substance: MAGNESIUM GLYCINATE
  5. B-1 [Concomitant]
  6. B-2 [Concomitant]
  7. D3 with K2 [Concomitant]
  8. Lion^s Mane Mushroom [Concomitant]
  9. Zinc Bisglycinate [Concomitant]
  10. GLUCOSAMINE [Concomitant]
     Active Substance: GLUCOSAMINE
  11. CHONDROITIN [Concomitant]
     Active Substance: CHONDROITIN

REACTIONS (5)
  - Dizziness [None]
  - Dizziness [None]
  - Syncope [None]
  - Fear [None]
  - Vision blurred [None]

NARRATIVE: CASE EVENT DATE: 20250108
